FAERS Safety Report 9375712 (Version 1)
Quarter: 2013Q2

REPORT INFORMATION
  Report Type: Report from Study
  Country: US (occurrence: US)
  Receive Date: 20130628
  Receipt Date: 20130628
  Transmission Date: 20140414
  Serious: Yes (Hospitalization)
  Sender: FDA-Public Use
  Company Number: US-BAXTER-2013BAX023995

PATIENT
  Age: 64 Year
  Sex: Male
  Weight: 109.4 kg

DRUGS (7)
  1. CYCLOPHOSPHAMIDE FOR INJECTION, USP [Suspect]
     Indication: PLASMA CELL MYELOMA
     Route: 042
     Dates: start: 20130517, end: 20130517
  2. BORTEZOMIB [Suspect]
     Indication: PLASMA CELL MYELOMA
     Route: 042
     Dates: start: 20130517, end: 20130528
  3. DEXAMETHASONE [Suspect]
     Indication: PLASMA CELL MYELOMA
     Route: 042
     Dates: start: 20130517, end: 20130529
  4. HEPARIN [Concomitant]
     Indication: PRODUCT USED FOR UNKNOWN INDICATION
     Route: 065
     Dates: start: 20130516, end: 20130517
  5. HEPARIN [Concomitant]
     Route: 065
     Dates: start: 20130518, end: 20130518
  6. HEPARIN [Concomitant]
     Route: 065
     Dates: start: 20130519, end: 20130519
  7. HEPARIN [Concomitant]
     Route: 065
     Dates: start: 20130521, end: 20130521

REACTIONS (3)
  - Haematuria [Recovered/Resolved]
  - Urinary tract infection [Unknown]
  - Urinary retention [Unknown]
